FAERS Safety Report 4658319-5 (Version None)
Quarter: 2005Q2

REPORT INFORMATION
  Report Type: 
  Country: None (occurrence: None)
  Receive Date: 20050509
  Receipt Date: 20050503
  Transmission Date: 20051028
  Serious: Yes (Disabling, Other)
  Sender: FDA-Public Use
  Company Number: GBWYE637203MAY05

PATIENT
  Age: 85 Year
  Sex: Female

DRUGS (5)
  1. EFFEXOR [Suspect]
     Indication: DEPRESSION
     Dosage: 75-225MG ORAL
     Route: 048
     Dates: start: 20041229, end: 20050203
  2. OLANZAPINE                (OLANZAPINE) [Concomitant]
  3. .......... [Concomitant]
  4. QUETIAPINE FUMARATE [Concomitant]
  5. TRIMETHOPRIM [Concomitant]

REACTIONS (8)
  - BLOOD PRESSURE DIASTOLIC DECREASED [None]
  - CONFUSIONAL STATE [None]
  - DELIRIUM [None]
  - DIZZINESS [None]
  - FALL [None]
  - HALLUCINATION, VISUAL [None]
  - ORTHOSTATIC HYPOTENSION [None]
  - TREMOR [None]
